FAERS Safety Report 15983227 (Version 2)
Quarter: 2019Q1

REPORT INFORMATION
  Report Type: Spontaneous
  Country: US (occurrence: US)
  Receive Date: 20190219
  Receipt Date: 20190329
  Transmission Date: 20190418
  Serious: No
  Sender: FDA-Public Use
  Company Number: US-ASTRAZENECA-2019SE17693

PATIENT
  Sex: Male

DRUGS (2)
  1. INULIN [Concomitant]
     Active Substance: INULIN
  2. BYDUREON BCISE [Suspect]
     Active Substance: EXENATIDE
     Indication: TYPE 2 DIABETES MELLITUS
     Route: 058

REACTIONS (3)
  - Device malfunction [Unknown]
  - Underdose [Not Recovered/Not Resolved]
  - Device leakage [Unknown]
